FAERS Safety Report 24749881 (Version 1)
Quarter: 2024Q4

REPORT INFORMATION
  Report Type: Spontaneous
  Country: US (occurrence: US)
  Receive Date: 20241218
  Receipt Date: 20241218
  Transmission Date: 20250115
  Serious: Yes (Other)
  Sender: PURDUE
  Company Number: US-NAPPMUNDI-GBR-2024-0122141

PATIENT
  Age: 70 Year
  Sex: Female

DRUGS (3)
  1. HYDROMORPHONE HYDROCHLORIDE [Suspect]
     Active Substance: HYDROMORPHONE HYDROCHLORIDE
     Indication: Pain management
     Dosage: 0.8 MG/ML
     Route: 037
  2. BACLOFEN [Suspect]
     Active Substance: BACLOFEN
     Indication: Pain management
     Dosage: 500 MCG/ML AT 0.09 MG/DAY AND 56.7 MCG/DAY RESPECTIVELY
     Route: 037
  3. HYDROMORPHONE HCL [Suspect]
     Active Substance: HYDROMORPHONE HYDROCHLORIDE
     Indication: Pain management
     Dosage: 0.8 MG/ML (MILLIGRAM PER MILLILITER)
     Route: 037

REACTIONS (7)
  - Paraplegia [Recovering/Resolving]
  - Hypoaesthesia [Recovering/Resolving]
  - Paraesthesia [Recovering/Resolving]
  - Anal incontinence [Recovering/Resolving]
  - Catheter site mass [Recovering/Resolving]
  - Catheter site inflammation [Recovering/Resolving]
  - Complication associated with device [Recovering/Resolving]
